FAERS Safety Report 17827707 (Version 2)
Quarter: 2020Q2

REPORT INFORMATION
  Report Type: Report from Study
  Country: AU (occurrence: AU)
  Receive Date: 20200527
  Receipt Date: 20200615
  Transmission Date: 20200714
  Serious: Yes (Other)
  Sender: FDA-Public Use
  Company Number: AU-ROCHE-2608877

PATIENT
  Sex: Male

DRUGS (1)
  1. OMALIZUMAB. [Suspect]
     Active Substance: OMALIZUMAB
     Indication: ANAPHYLAXIS TREATMENT
     Route: 065

REACTIONS (2)
  - Therapeutic product cross-reactivity [Unknown]
  - Withdrawal syndrome [Unknown]
